FAERS Safety Report 12060692 (Version 3)
Quarter: 2016Q3

REPORT INFORMATION
  Report Type: Spontaneous
  Country: CH (occurrence: CH)
  Receive Date: 20160210
  Receipt Date: 20160803
  Transmission Date: 20161109
  Serious: Yes (Hospitalization, Other)
  Sender: FDA-Public Use
  Company Number: CH-JNJFOC-20160207942

PATIENT
  Age: 70 Year
  Sex: Female
  Weight: 70 kg

DRUGS (9)
  1. ARCOXIA [Concomitant]
     Active Substance: ETORICOXIB
     Route: 048
  2. CIMIFEMIN [Concomitant]
     Route: 048
  3. XARELTO [Suspect]
     Active Substance: RIVAROXABAN
     Indication: FOOT OPERATION
     Route: 048
     Dates: start: 20160120, end: 20160128
  4. XARELTO [Suspect]
     Active Substance: RIVAROXABAN
     Indication: ORTHOPAEDIC PROCEDURE
     Route: 048
     Dates: start: 20160120, end: 20160128
  5. ESTRADOT [Concomitant]
     Active Substance: ESTRADIOL
     Route: 061
  6. NIFEDIPINE. [Concomitant]
     Active Substance: NIFEDIPINE
     Route: 048
  7. NEBILET [Concomitant]
     Active Substance: NEBIVOLOL
     Route: 048
  8. XARELTO [Suspect]
     Active Substance: RIVAROXABAN
     Indication: THROMBOSIS PROPHYLAXIS
     Route: 048
     Dates: start: 20160120, end: 20160128
  9. DAFALGAN [Concomitant]
     Active Substance: ACETAMINOPHEN
     Route: 048

REACTIONS (5)
  - Pancreatitis [Recovering/Resolving]
  - Abdominal pain [Recovered/Resolved]
  - Amylase increased [Recovering/Resolving]
  - Lipase increased [Recovering/Resolving]
  - Nausea [Recovered/Resolved]

NARRATIVE: CASE EVENT DATE: 20160127
